FAERS Safety Report 5988874-4 (Version None)
Quarter: 2008Q4

REPORT INFORMATION
  Report Type: 
  Country: None (occurrence: None)
  Receive Date: 20081210
  Receipt Date: 20081205
  Transmission Date: 20090506
  Serious: Yes (Life-Threatening, Hospitalization)
  Sender: FDA-Public Use
  Company Number: AU-JNJFOC-20081201075

PATIENT
  Age: 33 Year
  Sex: Female

DRUGS (4)
  1. ACETAMINOPHEN [Suspect]
  2. ACETAMINOPHEN [Suspect]
     Indication: HEADACHE
  3. MERSYNDOL [Suspect]
     Indication: HEADACHE
  4. FLUOXETINE [Concomitant]
     Indication: POSTPARTUM DEPRESSION

REACTIONS (3)
  - ACUTE HEPATIC FAILURE [None]
  - DRUG ADMINISTRATION ERROR [None]
  - OVERDOSE [None]
